FAERS Safety Report 25206236 (Version 1)
Quarter: 2025Q2

REPORT INFORMATION
  Report Type: Spontaneous
  Country: US (occurrence: US)
  Receive Date: 20250417
  Receipt Date: 20250417
  Transmission Date: 20250717
  Serious: Yes (Hospitalization, Other)
  Sender: ZYDUS PHARM
  Company Number: US-CADILA HEALTHCARE LIMITED-US-ZYDUS-122068

PATIENT

DRUGS (6)
  1. LIOTHYRONINE [Suspect]
     Active Substance: LIOTHYRONINE
     Indication: Product used for unknown indication
     Route: 065
  2. STANOZOLOL [Concomitant]
     Active Substance: STANOZOLOL
     Indication: Performance enhancing product use
     Route: 065
  3. CLENBUTEROL [Concomitant]
     Active Substance: CLENBUTEROL
     Indication: Performance enhancing product use
     Route: 065
  4. LIOTHYRONINE SODIUM [Concomitant]
     Active Substance: LIOTHYRONINE SODIUM
     Indication: Product used for unknown indication
     Route: 065
  5. PROPRANOLOL [Concomitant]
     Active Substance: PROPRANOLOL HYDROCHLORIDE
     Indication: Product used for unknown indication
     Route: 065
  6. LEVOTHYROXINE [Concomitant]
     Active Substance: LEVOTHYROXINE
     Indication: Supplementation therapy
     Route: 065

REACTIONS (4)
  - Cardiac arrest [Unknown]
  - Cardiomyopathy [Recovering/Resolving]
  - Hyperthyroidism [Unknown]
  - Ventricular fibrillation [Unknown]
